FAERS Safety Report 10103663 (Version 1)
Quarter: 2014Q2

REPORT INFORMATION
  Report Type: Spontaneous
  Country: GB (occurrence: GB)
  Receive Date: 20140424
  Receipt Date: 20140424
  Transmission Date: 20141212
  Serious: Yes (Life-Threatening, Hospitalization, Other)
  Sender: FDA-Public Use
  Company Number: GB-TEVA-475550ISR

PATIENT
  Age: 84 Year
  Sex: Female
  Weight: 63 kg

DRUGS (18)
  1. GLICLAZIDE [Suspect]
     Indication: TYPE 2 DIABETES MELLITUS
     Dosage: 160 MILLIGRAM DAILY; REDUCED TO 80MG ONCE A DAY WHILE IN HOSPITAL.
     Route: 048
  2. METFORMIN [Suspect]
     Dosage: 2 GRAM DAILY;
  3. RAMIPRIL [Suspect]
     Indication: ANGIOPATHY
     Dosage: 10 MILLIGRAM DAILY; FOR RENOVASCULAR DISEASE.
     Route: 048
     Dates: end: 20140312
  4. TRIMETHOPRIM [Suspect]
     Indication: URINARY TRACT INFECTION
     Dosage: 400 MILLIGRAM DAILY; ACUTE COURSE.
     Route: 048
     Dates: start: 20140306, end: 20140312
  5. CALCICHEW D3 FORTE [Suspect]
     Indication: OSTEOPOROSIS
     Dosage: 1 DOSAGE FORMS DAILY;
     Route: 048
     Dates: end: 20140312
  6. ALENDRONIC ACID [Concomitant]
  7. ALVERINE CITRATE [Concomitant]
     Dosage: 360 MILLIGRAM DAILY;
  8. ASPIRIN [Concomitant]
     Dosage: 75 MILLIGRAM DAILY;
  9. BRINZOLAMIDE [Concomitant]
     Dosage: BOTH EYES.
  10. FERROUS FUMARATE [Concomitant]
     Dosage: 210 MILLIGRAM DAILY;
     Dates: start: 20140221
  11. GAVISCON ADVANCE [Concomitant]
     Dates: start: 20140310
  12. LAXIDO [Concomitant]
  13. METOCLOPRAMIDE [Concomitant]
     Dosage: 30 MILLIGRAM DAILY; AS NECESSARY.
     Dates: start: 20140310
  14. PIOGLITAZONE HYDROCHLORIDE [Concomitant]
     Dosage: 30 MILLIGRAM DAILY;
  15. QUININE SULPHATE [Concomitant]
     Dosage: AT NIGHT
  16. SALBUTAMOL [Concomitant]
     Route: 055
  17. SIMVASTATIN [Concomitant]
     Dosage: 40 MILLIGRAM DAILY; AT NIGHT.
  18. ZAPAIN [Concomitant]
     Dosage: 4 DOSAGE FORMS DAILY; 1-2 FOUR TIMES A DAY AS NECESARY

REACTIONS (9)
  - Renal failure acute [Recovered/Resolved]
  - Hyperkalaemia [Recovered/Resolved]
  - Hypoglycaemia [Recovered/Resolved]
  - Hypercalcaemia [Recovered/Resolved]
  - Abdominal pain lower [Unknown]
  - Nausea [Unknown]
  - Malaise [Unknown]
  - Micturition urgency [Unknown]
  - Mucosal dryness [Unknown]
